FAERS Safety Report 8904943 (Version 4)
Quarter: 2014Q3

REPORT INFORMATION
  Report Type: Report from Study
  Country: BE (occurrence: BE)
  Receive Date: 20121111
  Receipt Date: 20140711
  Transmission Date: 20150326
  Serious: Yes (Other)
  Sender: FDA-Public Use
  Company Number: PHHO2012BE015872

PATIENT

DRUGS (5)
  1. CGS 20267 [Suspect]
     Active Substance: LETROZOLE
     Indication: BREAST CANCER
     Dosage: 2.5 MG/DAY
     Route: 048
     Dates: start: 20100318, end: 20101027
  2. NOLVADEX [Suspect]
     Active Substance: TAMOXIFEN CITRATE
     Indication: BREAST CANCER
     Dosage: 20 MG/DAY
     Route: 048
     Dates: start: 20080318, end: 20100317
  3. CYCLOPHOSPHAMIDE. [Suspect]
     Active Substance: CYCLOPHOSPHAMIDE
     Indication: BREAST CANCER
     Dosage: 700 MG, QW3
     Route: 042
     Dates: start: 20071004, end: 20081216
  4. FARMORUBICINE [Suspect]
     Active Substance: EPIRUBICIN HYDROCHLORIDE
     Indication: BREAST CANCER
     Dosage: 140 MG, QW3
     Route: 042
     Dates: start: 20071004, end: 20080116
  5. 5 FLUORO URACIL [Suspect]
     Active Substance: FLUOROURACIL
     Indication: BREAST CANCER
     Dosage: 700 MG, QW3
     Route: 042
     Dates: start: 20071004, end: 20080116

REACTIONS (1)
  - Adenocarcinoma gastric [Not Recovered/Not Resolved]

NARRATIVE: CASE EVENT DATE: 20120725
